FAERS Safety Report 15604373 (Version 1)
Quarter: 2018Q4

REPORT INFORMATION
  Report Type: Other
  Country: CN (occurrence: CN)
  Receive Date: 20181110
  Receipt Date: 20181110
  Transmission Date: 20190205
  Serious: Yes (Hospitalization, Other)
  Sender: FDA-Public Use
  Company Number: CN-ALLIED PHARMA, LLC-2058691

PATIENT
  Age: 55 Year
  Sex: Male

DRUGS (8)
  1. ALLOPURINOL. [Concomitant]
     Active Substance: ALLOPURINOL
     Route: 065
  2. AMOXICILLIN. [Suspect]
     Active Substance: AMOXICILLIN
     Route: 065
  3. NIFEDIPINE. [Concomitant]
     Active Substance: NIFEDIPINE
     Route: 065
  4. ATENOLOL. [Concomitant]
     Active Substance: ATENOLOL
     Route: 065
  5. CALCIUM CARBONATE. [Concomitant]
     Active Substance: CALCIUM CARBONATE
     Route: 065
  6. CLARITHROMYCIN. [Suspect]
     Active Substance: CLARITHROMYCIN
     Indication: GASTRITIS
     Route: 065
  7. ESOMEPRAZOLE. [Suspect]
     Active Substance: ESOMEPRAZOLE MAGNESIUM
     Route: 065
  8. SPIRONOLACTONE. [Concomitant]
     Active Substance: SPIRONOLACTONE
     Route: 065

REACTIONS (5)
  - Insomnia [Recovered/Resolved]
  - Tinnitus [Recovered/Resolved]
  - Hallucination, visual [Recovered/Resolved]
  - Neurotoxicity [Recovered/Resolved]
  - Toxicity to various agents [Recovered/Resolved]
